FAERS Safety Report 8094430-7 (Version None)
Quarter: 2012Q1

REPORT INFORMATION
  Report Type: 
  Country: None (occurrence: None)
  Receive Date: 20120130
  Receipt Date: 20120126
  Transmission Date: 20120608
  Serious: Yes (Hospitalization)
  Sender: FDA-Public Use
  Company Number: CZ-AMGEN-CZESP2012005535

PATIENT
  Age: 49 Year
  Sex: Female

DRUGS (26)
  1. PREDNISONE TAB [Suspect]
     Indication: DIFFUSE LARGE B-CELL LYMPHOMA
     Dosage: 110 MG, UNK
     Route: 048
     Dates: start: 20110401
  2. PROTHIADEN [Concomitant]
     Dosage: 25 MG, UNK
     Route: 048
     Dates: start: 20110311, end: 20110410
  3. MYCOMAX [Concomitant]
     Dosage: 400 MG, UNK
     Route: 048
     Dates: start: 20110412, end: 20110418
  4. SPIRONOLACTONE [Concomitant]
     Dosage: 75 MG, UNK
     Route: 048
     Dates: start: 20110315
  5. SANDONORM [Concomitant]
     Dosage: 0.5 MG, UNK
     Route: 048
     Dates: start: 20110412
  6. CYCLOPHOSPHAMIDE [Suspect]
     Indication: DIFFUSE LARGE B-CELL LYMPHOMA
     Dosage: 6000 MG, UNK
     Route: 042
     Dates: start: 20110401
  7. DOXORUBICIN HCL [Suspect]
     Indication: DIFFUSE LARGE B-CELL LYMPHOMA
     Dosage: 142 MG, UNK
     Dates: start: 20110401
  8. VINCRISTINE [Suspect]
     Indication: DIFFUSE LARGE B-CELL LYMPHOMA
     Dosage: 2 MG, UNK
     Route: 042
     Dates: start: 20110401
  9. NEULASTA [Suspect]
     Indication: DIFFUSE LARGE B-CELL LYMPHOMA
     Dosage: 6 MG, UNK
     Route: 058
     Dates: start: 20110402
  10. ALLOPURINOL [Concomitant]
     Dosage: 100 MG, UNK
     Route: 048
     Dates: start: 20110325, end: 20110410
  11. ENOXAPARIN SODIUM [Concomitant]
     Dosage: 2000 IU, UNK
     Route: 058
     Dates: start: 20110411
  12. NEUPOGEN [Suspect]
     Indication: DIFFUSE LARGE B-CELL LYMPHOMA
     Dosage: UNK
     Dates: start: 20110424
  13. OMEPRAZOLE [Concomitant]
     Dosage: 20 MG, UNK
     Dates: start: 20110325, end: 20110410
  14. KALNORMIN [Concomitant]
     Dosage: 3 G, UNK
     Route: 048
     Dates: start: 20110402
  15. RITUXIMAB [Suspect]
     Indication: DIFFUSE LARGE B-CELL LYMPHOMA
     Dosage: 1500 MG, UNK
     Route: 042
     Dates: start: 20110331
  16. LORISTA [Concomitant]
     Dosage: 50 MG, UNK
     Route: 048
     Dates: start: 20110410
  17. LYRICA [Concomitant]
     Dosage: 75 MG, UNK
     Route: 048
     Dates: start: 20110310, end: 20110413
  18. DURAGESIC-100 [Concomitant]
     Dosage: 50 MUG, UNK
     Route: 062
     Dates: start: 20110412
  19. FRAGMIN [Concomitant]
     Dosage: 5000 IU, UNK
     Route: 058
     Dates: start: 20110408
  20. ACYCLOVIR [Concomitant]
     Dosage: 800 MG, UNK
     Route: 048
     Dates: start: 20110311
  21. ORGAMETRIL [Concomitant]
     Dosage: 5 MG, UNK
     Route: 048
     Dates: start: 20110410
  22. OMEPRAZOLE [Concomitant]
     Dosage: UNK
     Dates: start: 20110503
  23. DIPYRONE INJ [Concomitant]
     Dosage: 500 MG, UNK
     Route: 048
     Dates: start: 20110304, end: 20110410
  24. COTRIM [Concomitant]
     Dosage: 960 MG, UNK
     Route: 048
     Dates: start: 20110311
  25. ZOLPIDEM [Concomitant]
     Dosage: 10 MG, UNK
     Route: 048
     Dates: start: 20110325, end: 20110410
  26. HUMALOG [Concomitant]
     Dosage: UNK
     Route: 058
     Dates: start: 20100101

REACTIONS (1)
  - FEBRILE NEUTROPENIA [None]
